FAERS Safety Report 14627000 (Version 3)
Quarter: 2018Q2

REPORT INFORMATION
  Report Type: Spontaneous
  Country: OM (occurrence: OM)
  Receive Date: 20180312
  Receipt Date: 20180512
  Transmission Date: 20180711
  Serious: Yes (Other)
  Sender: FDA-Public Use
  Company Number: OM-SA-2018SA066807

PATIENT
  Sex: Male

DRUGS (9)
  1. CARBOPLATIN. [Suspect]
     Active Substance: CARBOPLATIN
     Indication: EXTRAGONADAL PRIMARY NON-SEMINOMA
     Route: 065
  2. PACLITAXEL. [Suspect]
     Active Substance: PACLITAXEL
     Indication: EXTRAGONADAL PRIMARY NON-SEMINOMA
     Route: 065
  3. BLEOMYCIN [Suspect]
     Active Substance: BLEOMYCIN SULFATE
     Indication: EXTRAGONADAL PRIMARY NON-SEMINOMA
     Route: 065
  4. PACLITAXEL. [Suspect]
     Active Substance: PACLITAXEL
     Indication: EXTRAGONADAL PRIMARY NON-SEMINOMA
     Route: 065
  5. ETOPOSIDE. [Suspect]
     Active Substance: ETOPOSIDE
     Indication: EXTRAGONADAL PRIMARY NON-SEMINOMA
     Route: 065
  6. GEMCITABINE [Suspect]
     Active Substance: GEMCITABINE\GEMCITABINE HYDROCHLORIDE
     Indication: EXTRAGONADAL PRIMARY NON-SEMINOMA
     Route: 065
     Dates: start: 2010
  7. CARBOPLATIN. [Suspect]
     Active Substance: CARBOPLATIN
     Indication: EXTRAGONADAL PRIMARY NON-SEMINOMA
     Route: 065
  8. OXALIPLATIN. [Suspect]
     Active Substance: OXALIPLATIN
     Indication: EXTRAGONADAL PRIMARY NON-SEMINOMA
     Route: 065
     Dates: start: 2010
  9. CISPLATIN. [Suspect]
     Active Substance: CISPLATIN
     Indication: EXTRAGONADAL PRIMARY NON-SEMINOMA
     Route: 065

REACTIONS (6)
  - Effusion [Recovered/Resolved]
  - Excessive granulation tissue [Recovered/Resolved]
  - Arthralgia [Recovered/Resolved]
  - Oedema [Recovered/Resolved]
  - Fracture [Recovered/Resolved]
  - Osteonecrosis [Recovered/Resolved]

NARRATIVE: CASE EVENT DATE: 201202
